FAERS Safety Report 17200841 (Version 1)
Quarter: 2020Q1

REPORT INFORMATION
  Report Type: Spontaneous
  Country: US (occurrence: US)
  Receive Date: 20191224
  Receipt Date: 20191224
  Transmission Date: 20200409
  Serious: Yes (Disabling)
  Sender: FDA-Public Use
  Company Number: None

PATIENT
  Sex: Female
  Weight: 165 kg

DRUGS (5)
  1. RANITIDINE. [Concomitant]
     Active Substance: RANITIDINE
  2. COD LIVER OIL TABLETS [Concomitant]
  3. LEVOTHYROXINE. [Concomitant]
     Active Substance: LEVOTHYROXINE
  4. FOSTAIR AND VENTOLIN [Concomitant]
  5. GADOLINIUM DYE FOR MRI SCAN [Suspect]
     Active Substance: GADOLINIUM

REACTIONS (11)
  - Malaise [None]
  - White blood cell count decreased [None]
  - Suicidal ideation [None]
  - Rash erythematous [None]
  - Headache [None]
  - Ear pain [None]
  - Burning sensation [None]
  - Back pain [None]
  - Nausea [None]
  - Skin exfoliation [None]
  - Chest pain [None]

NARRATIVE: CASE EVENT DATE: 20110104
